FAERS Safety Report 9398404 (Version 1)
Quarter: 2013Q3

REPORT INFORMATION
  Report Type: Spontaneous
  Country: DK (occurrence: DK)
  Receive Date: 20130712
  Receipt Date: 20130712
  Transmission Date: 20140515
  Serious: Yes (Hospitalization, Other)
  Sender: FDA-Public Use
  Company Number: DK-WATSON-2013-12263

PATIENT
  Age: 32 Year
  Sex: Female

DRUGS (13)
  1. CARBOPLATIN (UNKNOWN) [Suspect]
     Indication: BREAST CANCER
     Dosage: DAILY TREATMENT. DAY 3 OF 21 DAY CYCLE
     Route: 041
     Dates: start: 20130109
  2. ABRAXANE [Suspect]
     Indication: BREAST CANCER
     Dosage: 175 MILLIGRAM(S)/SQ. METER
     Route: 041
     Dates: start: 20130109
  3. VELIPARIB [Suspect]
     Indication: BREAST CANCER
     Dosage: UNK
     Route: 048
     Dates: start: 20130107
  4. PARACETAMOL [Concomitant]
     Indication: MUSCULOSKELETAL PAIN
     Dosage: 1 G, TID
     Route: 065
     Dates: start: 20121210, end: 20130401
  5. IBUPROFEN [Concomitant]
     Indication: MUSCULOSKELETAL PAIN
     Dosage: 600 MG, BID
     Route: 065
     Dates: start: 20121210, end: 20130401
  6. CLEMASTINE [Concomitant]
     Indication: PROPHYLAXIS
     Dosage: 2 MG
     Route: 065
     Dates: start: 20130130, end: 20130130
  7. CLEMASTINE [Concomitant]
     Dosage: 2 MG
     Route: 065
     Dates: start: 20120130, end: 20120130
  8. CLEMASTINE [Concomitant]
     Dosage: 2 MG 3 WEEKS
     Route: 065
     Dates: start: 20120109
  9. RANITIDINE [Concomitant]
     Indication: PROPHYLAXIS
     Dosage: 50 MG 3 WEEKS
     Route: 065
     Dates: start: 20120109
  10. METHYLPREDNISOLONE                 /00049602/ [Concomitant]
     Indication: PROPHYLAXIS
     Dosage: 100 MG 3 WEEKS
     Route: 065
     Dates: start: 20120109
  11. ONDANSETRON [Concomitant]
     Indication: PROPHYLAXIS OF NAUSEA AND VOMITING
     Dosage: 16 MG 3 WEEKS
     Route: 065
     Dates: start: 20130609
  12. CYKLOKAPRON [Concomitant]
     Indication: LYMPHADENOPATHY
     Dosage: 500 MG, DAILY
     Route: 065
     Dates: start: 20130123, end: 20130401
  13. CYKLOKAPRON [Concomitant]
     Indication: LYMPHADENOPATHY

REACTIONS (2)
  - Lymphadenopathy [Recovered/Resolved]
  - Febrile neutropenia [Recovered/Resolved]
